FAERS Safety Report 6805325-8 (Version None)
Quarter: 2010Q2

REPORT INFORMATION
  Report Type: 
  Country: None (occurrence: None)
  Receive Date: 20100628
  Receipt Date: 20071018
  Transmission Date: 20101027
  Serious: No
  Sender: FDA-Public Use
  Company Number: US-PFIZER INC-2007077655

PATIENT
  Sex: Male
  Weight: 100 kg

DRUGS (4)
  1. XALATAN [Suspect]
     Indication: GLAUCOMA
     Dates: start: 20060101
  2. CARDIOVASCULAR SYSTEM DRUGS [Concomitant]
  3. ALLOPURINOL [Concomitant]
  4. NEXIUM [Concomitant]

REACTIONS (1)
  - EYE PAIN [None]
